FAERS Safety Report 16275521 (Version 1)
Quarter: 2019Q2

REPORT INFORMATION
  Report Type: Spontaneous
  Country: US (occurrence: US)
  Receive Date: 20190503
  Receipt Date: 20190503
  Transmission Date: 20190711
  Serious: Yes (Life-Threatening, Hospitalization)
  Sender: FDA-Public Use
  Company Number: None

PATIENT
  Age: 75 Year
  Sex: Female

DRUGS (1)
  1. SPIRONOLACTONE. [Suspect]
     Active Substance: SPIRONOLACTONE
     Indication: HYPERTENSION
     Route: 048
     Dates: start: 20190405, end: 20190417

REACTIONS (6)
  - Blood sodium increased [None]
  - Feeling abnormal [None]
  - Fatigue [None]
  - Pruritus [None]
  - Pain of skin [None]
  - Nausea [None]

NARRATIVE: CASE EVENT DATE: 20190421
